FAERS Safety Report 23343580 (Version 2)
Quarter: 2024Q1

REPORT INFORMATION
  Report Type: Spontaneous
  Country: DE (occurrence: DE)
  Receive Date: 20231227
  Receipt Date: 20240104
  Transmission Date: 20240409
  Serious: Yes (Life-Threatening)
  Sender: FDA-Public Use
  Company Number: DE-DCGMA-23202418

PATIENT
  Age: 66 Year
  Sex: Male
  Weight: 72 kg

DRUGS (2)
  1. TRANEXAMIC ACID [Suspect]
     Active Substance: TRANEXAMIC ACID
     Indication: Wound haemorrhage
     Dosage: 1000 MG, SINGLE (30 MINUTES ADMINISTRATION)
     Route: 042
  2. DEXTRIN [Suspect]
     Active Substance: ICODEXTRIN
     Indication: Tissue adhesion prophylaxis
     Dosage: 1000 ML (PERITONEOMA PERSISTENCE)
     Route: 033

REACTIONS (3)
  - Cyanosis [Not Recovered/Not Resolved]
  - Dyspnoea [Not Recovered/Not Resolved]
  - Pulmonary embolism [Not Recovered/Not Resolved]

NARRATIVE: CASE EVENT DATE: 20231128
